FAERS Safety Report 9665330 (Version 2)
Quarter: 2014Q1

REPORT INFORMATION
  Report Type: Report from Study
  Country: US (occurrence: US)
  Receive Date: 20131101
  Receipt Date: 20140213
  Transmission Date: 20141002
  Serious: No
  Sender: FDA-Public Use
  Company Number: US-B.I. PHARMACEUTICALS,INC./RIDGEFIELD-2013-BI-34043BI

PATIENT
  Age: 70 Year
  Sex: Male

DRUGS (8)
  1. GILOTRIF [Suspect]
     Indication: LUNG NEOPLASM MALIGNANT
     Dosage: 40 MG
     Route: 048
     Dates: start: 20130919
  2. GILOTRIF [Suspect]
     Indication: NON-SMALL CELL LUNG CANCER
     Dosage: 40 MG
     Route: 048
     Dates: start: 20130928
  3. NEURONTIN [Concomitant]
     Dosage: 1200 MG
  4. PERCOCET [Concomitant]
     Dosage: DAILY DOSE: 5/325
  5. AMBIEN [Concomitant]
     Indication: SLEEP DISORDER
     Dosage: 5 MG
  6. PROTONIX [Concomitant]
     Indication: GASTROOESOPHAGEAL REFLUX DISEASE
     Dosage: 40 MG
  7. LEXAPRO [Concomitant]
     Dosage: 5 MG
  8. ZOFRAN [Concomitant]
     Dosage: 5 MG

REACTIONS (14)
  - Nausea [Not Recovered/Not Resolved]
  - Diarrhoea [Not Recovered/Not Resolved]
  - Decreased appetite [Not Recovered/Not Resolved]
  - Asthenia [Not Recovered/Not Resolved]
  - Dry skin [Not Recovered/Not Resolved]
  - Rash [Not Recovered/Not Resolved]
  - Skin lesion [Not Recovered/Not Resolved]
  - Rash [Unknown]
  - Diarrhoea [Unknown]
  - Diarrhoea [Not Recovered/Not Resolved]
  - Rash [Not Recovered/Not Resolved]
  - Rash [Not Recovered/Not Resolved]
  - Drug administration error [Recovered/Resolved]
  - Renal impairment [Recovered/Resolved]
